FAERS Safety Report 11275352 (Version 8)
Quarter: 2018Q2

REPORT INFORMATION
  Report Type: Spontaneous
  Country: CA (occurrence: CA)
  Receive Date: 20150716
  Receipt Date: 20180612
  Transmission Date: 20180711
  Serious: Yes (Hospitalization, Other)
  Sender: FDA-Public Use
  Company Number: CA-ROCHE-1455724

PATIENT
  Age: 67 Year
  Sex: Female

DRUGS (12)
  1. XOLAIR [Suspect]
     Active Substance: OMALIZUMAB
     Route: 058
     Dates: start: 20171012
  2. XOLAIR [Suspect]
     Active Substance: OMALIZUMAB
     Indication: ASTHMA
     Route: 058
     Dates: start: 20110929
  3. XOLAIR [Suspect]
     Active Substance: OMALIZUMAB
     Route: 058
     Dates: start: 20150611
  4. XOLAIR [Suspect]
     Active Substance: OMALIZUMAB
     Route: 058
     Dates: start: 20170420
  5. SYMBICORT [Concomitant]
     Active Substance: BUDESONIDE\FORMOTEROL FUMARATE DIHYDRATE
  6. XOLAIR [Suspect]
     Active Substance: OMALIZUMAB
     Route: 058
     Dates: start: 20170914
  7. SPIRIVA [Concomitant]
     Active Substance: TIOTROPIUM BROMIDE MONOHYDRATE
  8. XOLAIR [Suspect]
     Active Substance: OMALIZUMAB
     Route: 058
     Dates: start: 20171102
  9. XOLAIR [Suspect]
     Active Substance: OMALIZUMAB
     Route: 058
     Dates: start: 20170525
  10. XOLAIR [Suspect]
     Active Substance: OMALIZUMAB
     Route: 058
     Dates: start: 20180301
  11. ALVESCO [Concomitant]
     Active Substance: CICLESONIDE
  12. VENTOLIN [Concomitant]
     Active Substance: ALBUTEROL SULFATE

REACTIONS (12)
  - Respiratory tract infection [Unknown]
  - Chest discomfort [Recovered/Resolved]
  - Hypersensitivity [Recovered/Resolved]
  - Malaise [Unknown]
  - Herpes zoster [Unknown]
  - Asthma [Recovered/Resolved]
  - Cough [Unknown]
  - Loss of consciousness [Recovered/Resolved]
  - Blood pressure systolic increased [Not Recovered/Not Resolved]
  - Breast cancer [Unknown]
  - Nasopharyngitis [Recovering/Resolving]
  - Productive cough [Recovering/Resolving]

NARRATIVE: CASE EVENT DATE: 2014
